FAERS Safety Report 23759129 (Version 1)
Quarter: 2024Q2

REPORT INFORMATION
  Report Type: Spontaneous
  Country: US (occurrence: None)
  Receive Date: 20240418
  Receipt Date: 20240418
  Transmission Date: 20240716
  Serious: No
  Sender: FDA-Public Use
  Company Number: US-ROCHE-3331444

PATIENT
  Age: 87 Year
  Sex: Male
  Weight: 180 kg

DRUGS (3)
  1. ESBRIET [Suspect]
     Active Substance: PIRFENIDONE
     Indication: Lung infiltration
     Dosage: 3 PILLS TWICE DAY A TOTAL OF 6 PILLS
     Route: 048
  2. ESBRIET [Suspect]
     Active Substance: PIRFENIDONE
     Indication: Pulmonary fibrosis
  3. ESBRIET [Suspect]
     Active Substance: PIRFENIDONE
     Indication: Pulmonary mass

REACTIONS (2)
  - Off label use [Unknown]
  - No adverse event [Unknown]
